FAERS Safety Report 19161433 (Version 1)
Quarter: 2021Q2

REPORT INFORMATION
  Report Type: Spontaneous
  Country: GB (occurrence: GB)
  Receive Date: 20210421
  Receipt Date: 20210421
  Transmission Date: 20210717
  Serious: Yes (Other)
  Sender: FDA-Public Use
  Company Number: GB-REGENERON PHARMACEUTICALS, INC.-2021-43343

PATIENT

DRUGS (2)
  1. EYLEA [Suspect]
     Active Substance: AFLIBERCEPT
     Indication: NEOVASCULAR AGE-RELATED MACULAR DEGENERATION
     Dosage: UNK
     Route: 031
     Dates: start: 20200602, end: 20200908
  2. EYLEA [Suspect]
     Active Substance: AFLIBERCEPT
     Dosage: 1 DF, ONCE, 1ST INJECTION
     Route: 031
     Dates: start: 20200602, end: 20200602

REACTIONS (3)
  - Balance disorder [Unknown]
  - Visual impairment [Not Recovered/Not Resolved]
  - Metamorphopsia [Not Recovered/Not Resolved]

NARRATIVE: CASE EVENT DATE: 20200603
